FAERS Safety Report 4887080-4 (Version None)
Quarter: 2006Q1

REPORT INFORMATION
  Report Type: 
  Country: None (occurrence: None)
  Receive Date: 20060120
  Receipt Date: 20051005
  Transmission Date: 20060701
  Serious: Yes (Hospitalization)
  Sender: FDA-Public Use
  Company Number: US-MERCK-0510USA04657

PATIENT
  Age: 44 Year
  Sex: Male
  Weight: 86 kg

DRUGS (2)
  1. VIOXX [Suspect]
     Indication: TENDONITIS
     Route: 048
     Dates: start: 20011001, end: 20040901
  2. VIOXX [Suspect]
     Indication: ARTHRITIS
     Route: 048
     Dates: start: 20011001, end: 20040901

REACTIONS (4)
  - HEART RATE IRREGULAR [None]
  - HYPERTENSION [None]
  - SYNCOPE VASOVAGAL [None]
  - TRANSIENT ISCHAEMIC ATTACK [None]
